FAERS Safety Report 23687237 (Version 1)
Quarter: 2024Q1

REPORT INFORMATION
  Report Type: Spontaneous
  Country: CA (occurrence: CA)
  Receive Date: 20240329
  Receipt Date: 20240329
  Transmission Date: 20240409
  Serious: Yes (Other)
  Sender: FDA-Public Use
  Company Number: CA-GREER Laboratories, Inc.-2154986

PATIENT
  Age: 35 Year
  Sex: Male

DRUGS (15)
  1. AGROSTIS GIGANTEA POLLEN\DACTYLIS GLOMERATA POLLEN\PHLEUM PRATENSE POL [Suspect]
     Active Substance: AGROSTIS GIGANTEA POLLEN\DACTYLIS GLOMERATA POLLEN\PHLEUM PRATENSE POLLEN\POA PRATENSIS POLLEN
     Indication: Product used for unknown indication
     Route: 058
  2. SHORT AND GIANT RAGWEED POLLEN MIX [Suspect]
     Active Substance: AMBROSIA ARTEMISIIFOLIA POLLEN\AMBROSIA TRIFIDA POLLEN
     Route: 058
  3. PINE POLLEN MIX [Suspect]
     Active Substance: PINUS ECHINATA POLLEN\PINUS STROBUS POLLEN\PINUS TAEDA POLLEN
     Route: 058
  4. RUSSIAN THISTLE POLLEN [Suspect]
     Active Substance: SALSOLA KALI POLLEN
     Route: 058
  5. YELLOW CURLY DOCK POLLEN [Suspect]
     Active Substance: RUMEX CRISPUS POLLEN
     Route: 058
  6. ENGLISH PLANTAIN POLLEN [Suspect]
     Active Substance: PLANTAGO LANCEOLATA POLLEN
     Route: 058
  7. COMMON MUGWORT POLLEN [Suspect]
     Active Substance: ARTEMISIA VULGARIS POLLEN
     Route: 058
  8. WHITE POPLAR POLLEN [Suspect]
     Active Substance: POPULUS ALBA POLLEN
     Route: 058
  9. RED MULBERRY POLLEN [Suspect]
     Active Substance: MORUS RUBRA POLLEN
     Route: 058
  10. STANDARDIZED CAT HAIR [Suspect]
     Active Substance: FELIS CATUS HAIR
     Route: 058
  11. STANDARDIZED MITE MIX [Suspect]
     Active Substance: DERMATOPHAGOIDES FARINAE\DERMATOPHAGOIDES PTERONYSSINUS
     Route: 058
  12. ROCKY MOUNTAIN JUNIPER POLLEN [Suspect]
     Active Substance: JUNIPERUS SCOPULORUM POLLEN
     Route: 058
  13. SHAGBARK HICKORY POLLEN [Suspect]
     Active Substance: CARYA OVATA POLLEN
     Route: 058
  14. WHITE BIRCH POLLEN [Suspect]
     Active Substance: BETULA POPULIFOLIA POLLEN
     Route: 058
  15. WHITE ASH POLLEN [Suspect]
     Active Substance: FRAXINUS AMERICANA POLLEN
     Route: 058

REACTIONS (1)
  - Anaphylactic reaction [Recovered/Resolved]
